FAERS Safety Report 11998959 (Version 1)
Quarter: 2016Q1

REPORT INFORMATION
  Report Type: Spontaneous
  Country: DE (occurrence: DE)
  Receive Date: 20160203
  Receipt Date: 20160203
  Transmission Date: 20160526
  Serious: Yes (Death, Other)
  Sender: FDA-Public Use
  Company Number: DE-BRISTOL-MYERS SQUIBB COMPANY-BMS-2015-064214

PATIENT
  Sex: Male
  Weight: 95 kg

DRUGS (1)
  1. NIVOLUMAB [Suspect]
     Active Substance: NIVOLUMAB
     Indication: NON-SMALL CELL LUNG CANCER
     Dosage: 288 MG, Q2WK
     Route: 042
     Dates: start: 20150812, end: 20150914

REACTIONS (2)
  - Malignant neoplasm progression [Fatal]
  - Disturbance in attention [Unknown]
